FAERS Safety Report 13491331 (Version 1)
Quarter: 2017Q2

REPORT INFORMATION
  Report Type: Spontaneous
  Country: US (occurrence: US)
  Receive Date: 20170427
  Receipt Date: 20170427
  Transmission Date: 20170830
  Serious: Yes (Hospitalization, Other)
  Sender: FDA-Public Use
  Company Number: US-STRIDES ARCOLAB LIMITED-2017SP006855

PATIENT

DRUGS (8)
  1. VANCOMYCIN [Suspect]
     Active Substance: VANCOMYCIN
     Dosage: 37 MG/KG, QD
     Route: 065
  2. VANCOMYCIN [Suspect]
     Active Substance: VANCOMYCIN
     Dosage: 12.3 MG/KG, DAILY
     Route: 065
  3. VANCOMYCIN [Suspect]
     Active Substance: VANCOMYCIN
     Indication: WOUND INFECTION STAPHYLOCOCCAL
     Dosage: 12.33 MG/KG, EVERY 8 HOURS
     Route: 065
  4. PIPERACILLIN AND TAZOBACTAM [Suspect]
     Active Substance: PIPERACILLIN SODIUM\TAZOBACTAM SODIUM
     Indication: PRODUCT USED FOR UNKNOWN INDICATION
     Dosage: UNK, UNKNOWN
     Route: 065
  5. VANCOMYCIN [Suspect]
     Active Substance: VANCOMYCIN
     Dosage: 49.4 MG/KG, QD
     Route: 065
  6. VANCOMYCIN [Suspect]
     Active Substance: VANCOMYCIN
     Dosage: 49.4 MG/KG, UNK
     Route: 065
  7. VANCOMYCIN [Suspect]
     Active Substance: VANCOMYCIN
     Dosage: 37 MG/KG, DAILY
     Route: 065
  8. CIPROFLOXACIN. [Concomitant]
     Active Substance: CIPROFLOXACIN
     Indication: KLEBSIELLA INFECTION
     Dosage: UNK, UNKNOWN
     Route: 065

REACTIONS (4)
  - Nephropathy toxic [Recovered/Resolved]
  - Renal tubular necrosis [Recovered/Resolved]
  - Nausea [Recovered/Resolved]
  - Acute kidney injury [Recovered/Resolved]
